FAERS Safety Report 4421385-6 (Version None)
Quarter: 2004Q3

REPORT INFORMATION
  Report Type: 
  Country: None (occurrence: None)
  Receive Date: 20040804
  Receipt Date: 20040727
  Transmission Date: 20050211
  Serious: Yes (Life-Threatening)
  Sender: FDA-Public Use
  Company Number: 2004AP03931

PATIENT
  Age: 38 Year
  Sex: Male

DRUGS (1)
  1. LOSEC [Suspect]
     Indication: DUODENAL ULCER
     Dosage: 20 MG BID PO
     Route: 048

REACTIONS (1)
  - SHOCK [None]
